FAERS Safety Report 16189101 (Version 1)
Quarter: 2019Q2

REPORT INFORMATION
  Report Type: Other
  Country: GB (occurrence: GB)
  Receive Date: 20190412
  Receipt Date: 20190412
  Transmission Date: 20190711
  Serious: Yes (Other)
  Sender: FDA-Public Use
  Company Number: GB-APOTEX-2019AP011386

PATIENT
  Age: 54 Year
  Sex: Female

DRUGS (43)
  1. DEXAMETHASONE. [Concomitant]
     Active Substance: DEXAMETHASONE
     Dosage: 4 MG, QD
     Route: 048
     Dates: start: 20151104, end: 20151110
  2. MEROPENEM. [Concomitant]
     Active Substance: MEROPENEM
     Indication: PRODUCT USED FOR UNKNOWN INDICATION
     Dosage: 1 G, QD
     Route: 042
     Dates: start: 20181222, end: 20181227
  3. DENOSUMAB [Concomitant]
     Active Substance: DENOSUMAB
     Indication: METASTASES TO BONE
     Dosage: 120 MG, 4 WEEK
     Route: 058
     Dates: start: 20170604, end: 20170613
  4. DIAZEPAM. [Concomitant]
     Active Substance: DIAZEPAM
     Indication: BACK PAIN
     Dosage: 2 MG, QD
     Route: 048
     Dates: start: 20180105
  5. PROMETHAZINE HYDROCHLORIDE. [Concomitant]
     Active Substance: PROMETHAZINE HYDROCHLORIDE
     Indication: PRODUCT USED FOR UNKNOWN INDICATION
     Dosage: UNK
     Route: 048
  6. CYCLIZINE [Concomitant]
     Active Substance: CYCLIZINE
     Indication: PRODUCT USED FOR UNKNOWN INDICATION
     Dosage: 50 MG, QD
     Route: 048
     Dates: start: 201507
  7. EXEMESTANE. [Suspect]
     Active Substance: EXEMESTANE
     Indication: HER-2 POSITIVE BREAST CANCER
     Dosage: 25 MG, QD
     Route: 048
     Dates: start: 20170428, end: 20180110
  8. DEXAMETHASONE. [Concomitant]
     Active Substance: DEXAMETHASONE
     Indication: METASTASES TO BONE
     Dosage: 2 MG, QD,REDUCING WEEKLY DOSE
     Route: 048
     Dates: start: 20151111, end: 20151117
  9. MEROPENEM. [Concomitant]
     Active Substance: MEROPENEM
     Indication: PYREXIA
     Dosage: 1 G, QD
     Route: 042
     Dates: start: 20180813, end: 20180814
  10. DENOSUMAB [Concomitant]
     Active Substance: DENOSUMAB
     Indication: PRODUCT USED FOR UNKNOWN INDICATION
     Dosage: 120 MG, 6 WEEK
     Route: 058
     Dates: start: 20180118
  11. BENZYLPENICILLIN [Concomitant]
     Active Substance: PENICILLIN G
     Indication: PYREXIA
     Dosage: 1.2 G, QD
     Route: 042
     Dates: start: 20180912, end: 20180915
  12. AMOXICILLIN. [Concomitant]
     Active Substance: AMOXICILLIN
     Indication: LOWER RESPIRATORY TRACT INFECTION
     Dosage: 1000 MG, QD
     Route: 048
     Dates: start: 20180701, end: 20180711
  13. LINEZOLID. [Concomitant]
     Active Substance: LINEZOLID
     Indication: PYREXIA
     Dosage: 600 MG, QD
     Route: 048
     Dates: start: 20181223, end: 20181227
  14. LANSOPRAZOLE. [Concomitant]
     Active Substance: LANSOPRAZOLE
     Indication: PRODUCT USED FOR UNKNOWN INDICATION
     Dosage: 15 MG, QD
     Route: 048
     Dates: start: 2001
  15. DEXAMETHASONE. [Concomitant]
     Active Substance: DEXAMETHASONE
     Dosage: 1 MG, QD
     Route: 048
     Dates: start: 20151125, end: 20151202
  16. ZOMETA [Concomitant]
     Active Substance: ZOLEDRONIC ACID
     Indication: PRODUCT USED FOR UNKNOWN INDICATION
     Dosage: 4 MG, 4 MONTH
     Route: 042
     Dates: start: 20150827
  17. BENZYLPENICILLIN [Concomitant]
     Active Substance: PENICILLIN G
     Indication: CELLULITIS
  18. METRONIDAZOLE. [Concomitant]
     Active Substance: METRONIDAZOLE
     Indication: CELLULITIS
     Dosage: UNK
     Route: 048
     Dates: start: 20170701, end: 20170708
  19. PEPTAC                             /00550802/ [Concomitant]
     Indication: PRODUCT USED FOR UNKNOWN INDICATION
     Dosage: 15 ML, UNK
     Route: 048
  20. DEXAMETHASONE. [Concomitant]
     Active Substance: DEXAMETHASONE
     Dosage: 4 MG, QD
     Route: 048
     Dates: start: 20151020, end: 20151103
  21. GABAPENTIN. [Concomitant]
     Active Substance: GABAPENTIN
     Indication: PRODUCT USED FOR UNKNOWN INDICATION
     Dosage: 300 MG, 3 DAY
     Route: 048
     Dates: start: 20151231
  22. METRONIDAZOLE. [Concomitant]
     Active Substance: METRONIDAZOLE
     Indication: OSTEOMYELITIS
     Dosage: 400 MG, QD
     Route: 048
     Dates: start: 20180915, end: 20180921
  23. CODEINE [Concomitant]
     Active Substance: CODEINE
     Indication: PRODUCT USED FOR UNKNOWN INDICATION
     Dosage: 30 MG, UNK,AS NEEDED
     Route: 048
     Dates: start: 201504
  24. TRASTUZUMAB. [Suspect]
     Active Substance: TRASTUZUMAB
     Indication: HER-2 POSITIVE BREAST CANCER
     Dosage: 600 MG, 1 MONTH
     Route: 058
     Dates: start: 20150716, end: 20171222
  25. VITAMIN D3 [Concomitant]
     Active Substance: CHOLECALCIFEROL
     Indication: PRODUCT USED FOR UNKNOWN INDICATION
     Dosage: 400 IU, UNK
     Route: 048
     Dates: start: 20150827
  26. TEICOPLANIN [Concomitant]
     Active Substance: TEICOPLANIN
     Indication: PYREXIA
     Dosage: 600 MG, QD
     Route: 042
     Dates: start: 20181019, end: 20181025
  27. MORPHINE SULPHATE [Concomitant]
     Active Substance: MORPHINE SULFATE
     Indication: PRODUCT USED FOR UNKNOWN INDICATION
     Dosage: 10 MG, QD
     Route: 048
     Dates: start: 20171224
  28. DEXAMETHASONE. [Concomitant]
     Active Substance: DEXAMETHASONE
     Indication: PRODUCT USED FOR UNKNOWN INDICATION
     Dosage: 8 MG, QD,REDUCING DOSE FROM HOSPITAL ADMISSION 8/OCT/2015- 10/OCT/2015
     Route: 048
     Dates: start: 20151008, end: 20151020
  29. DEXAMETHASONE. [Concomitant]
     Active Substance: DEXAMETHASONE
     Dosage: 1 MG, QD
     Route: 048
     Dates: start: 20151118, end: 20151124
  30. MORPHINE SULPHATE [Concomitant]
     Active Substance: MORPHINE SULFATE
     Indication: BACK PAIN
     Dosage: 40 MG, QD,ONCE AT NIGHT
     Route: 048
     Dates: start: 20150516
  31. AMOXICILLIN. [Concomitant]
     Active Substance: AMOXICILLIN
     Indication: OSTEOMYELITIS
     Dosage: UNK
     Route: 048
     Dates: start: 20170701, end: 20170706
  32. DOXYCYCLINE. [Concomitant]
     Active Substance: DOXYCYCLINE
     Indication: PYREXIA
     Dosage: 100 MG, QD
     Route: 048
     Dates: start: 20180814, end: 20180814
  33. CITALOPRAM [Concomitant]
     Active Substance: CITALOPRAM HYDROBROMIDE
     Indication: PRODUCT USED FOR UNKNOWN INDICATION
     Dosage: 40 MG, QD
     Route: 048
     Dates: start: 2005
  34. DIAZEPAM. [Concomitant]
     Active Substance: DIAZEPAM
     Indication: MUSCULOSKELETAL STIFFNESS
     Route: 065
  35. ZOMORPH [Concomitant]
     Active Substance: MORPHINE SULFATE
     Indication: PRODUCT USED FOR UNKNOWN INDICATION
     Dosage: 30 MG, QD
     Route: 048
     Dates: start: 201611
  36. MORPHINE SULPHATE [Concomitant]
     Active Substance: MORPHINE SULFATE
     Dosage: 30 MG, QD
     Route: 048
     Dates: start: 201504
  37. PARACETAMOL [Concomitant]
     Active Substance: ACETAMINOPHEN
     Indication: PRODUCT USED FOR UNKNOWN INDICATION
     Dosage: 500 MG, UNK,AS NEEDED
     Route: 048
     Dates: start: 201504
  38. DOXYCYCLINE. [Concomitant]
     Active Substance: DOXYCYCLINE
     Indication: LOWER RESPIRATORY TRACT INFECTION
     Dosage: UNK
     Route: 048
     Dates: start: 20170112, end: 20170118
  39. HYOSCINE BUTYLBROMIDE [Concomitant]
     Active Substance: BUTYLSCOPOLAMINE BROMIDE
     Indication: NAUSEA
     Dosage: 10 MG, QD
     Route: 048
     Dates: start: 20181222
  40. LETROZOLE. [Suspect]
     Active Substance: LETROZOLE
     Indication: HER-2 POSITIVE BREAST CANCER
     Dosage: 2.5 MG, QD
     Route: 048
     Dates: start: 201507, end: 20170427
  41. MORPHINE SULPHATE [Concomitant]
     Active Substance: MORPHINE SULFATE
     Indication: PRODUCT USED FOR UNKNOWN INDICATION
     Dosage: 60 MG, QD, AT NIGHT
     Route: 048
     Dates: start: 201504, end: 20160516
  42. CLARITHROMYCIN. [Concomitant]
     Active Substance: CLARITHROMYCIN
     Indication: LOWER RESPIRATORY TRACT INFECTION
     Dosage: 500 MG, QD
     Route: 048
     Dates: start: 20180701, end: 20180711
  43. LISINOPRIL. [Concomitant]
     Active Substance: LISINOPRIL
     Indication: EJECTION FRACTION DECREASED
     Dosage: 2.5 MG, QD
     Route: 048
     Dates: start: 20161110

REACTIONS (5)
  - Lymphoedema [Not Recovered/Not Resolved]
  - Herpes zoster [Recovered/Resolved]
  - Oral herpes [Recovered/Resolved]
  - Anaemia [Recovered/Resolved]
  - Humerus fracture [Recovered/Resolved]

NARRATIVE: CASE EVENT DATE: 20151112
